FAERS Safety Report 21601975 (Version 12)
Quarter: 2023Q2

REPORT INFORMATION
  Report Type: Spontaneous
  Country: CO (occurrence: CO)
  Receive Date: 20221116
  Receipt Date: 20230509
  Transmission Date: 20230722
  Serious: Yes (Hospitalization, Other)
  Sender: FDA-Public Use
  Company Number: CO-GLAXOSMITHKLINE-CO2022AMR167147

PATIENT

DRUGS (1)
  1. MEPOLIZUMAB [Suspect]
     Active Substance: MEPOLIZUMAB
     Indication: Asthma
     Dosage: 100 MG, Q4W
     Dates: start: 20210820

REACTIONS (17)
  - Thrombosis [Recovered/Resolved]
  - Deep vein thrombosis [Recovering/Resolving]
  - Pneumonia [Unknown]
  - Pulmonary embolism [Recovering/Resolving]
  - Asthmatic crisis [Recovered/Resolved]
  - Peripheral swelling [Recovering/Resolving]
  - Venous thrombosis limb [Recovered/Resolved]
  - Pain in extremity [Recovering/Resolving]
  - Dyspnoea [Not Recovered/Not Resolved]
  - Cough [Not Recovered/Not Resolved]
  - Chest discomfort [Not Recovered/Not Resolved]
  - Embolism [Unknown]
  - Arteriosclerosis [Unknown]
  - Fatigue [Unknown]
  - Sinusitis [Unknown]
  - Asthma [Unknown]
  - Product dose omission issue [Unknown]

NARRATIVE: CASE EVENT DATE: 20221104
